FAERS Safety Report 5845035-7 (Version None)
Quarter: 2008Q3

REPORT INFORMATION
  Report Type: 
  Country: None (occurrence: None)
  Receive Date: 20080814
  Receipt Date: 20080722
  Transmission Date: 20090109
  Serious: Yes (Death, Hospitalization)
  Sender: FDA-Public Use
  Company Number: JP-EISAI MEDICAL RESEARCH-E2090-00095-CLI-JP

PATIENT
  Sex: Male

DRUGS (19)
  1. ZONEGRAN [Suspect]
     Indication: PARKINSON'S DISEASE
     Route: 048
     Dates: start: 20050115, end: 20050701
  2. ZONEGRAN [Suspect]
     Route: 048
     Dates: start: 20050702, end: 20060210
  3. ZONEGRAN [Suspect]
     Route: 048
     Dates: start: 20060211, end: 20060324
  4. ZONEGRAN [Suspect]
     Route: 048
     Dates: start: 20060325, end: 20060918
  5. RISPERDAL [Suspect]
     Indication: ABNORMAL BEHAVIOUR
     Route: 048
     Dates: start: 20060916, end: 20060918
  6. PARLODEL [Concomitant]
     Indication: PARKINSON'S DISEASE
     Route: 048
     Dates: start: 20050115, end: 20060918
  7. NEODOPASOL [Concomitant]
     Indication: PARKINSON'S DISEASE
     Route: 048
     Dates: start: 20050115, end: 20060918
  8. DOPS [Concomitant]
     Indication: PARKINSON'S DISEASE
     Route: 048
     Dates: start: 20050115, end: 20060918
  9. ARTANE [Concomitant]
     Indication: PARKINSON'S DISEASE
     Route: 048
     Dates: start: 20050115, end: 20060918
  10. CABASER [Concomitant]
     Indication: PARKINSON'S DISEASE
     Route: 048
     Dates: start: 20050115, end: 20060918
  11. SEDIEL [Concomitant]
     Indication: INSOMNIA
     Route: 048
     Dates: start: 20060609, end: 20060918
  12. EVIPROSTAT [Concomitant]
     Indication: BENIGN PROSTATIC HYPERPLASIA
     Route: 048
     Dates: start: 20050115, end: 20060918
  13. EVIPROSTAT [Concomitant]
     Route: 048
     Dates: start: 20060919
  14. MASHI-NIN-GAN [Concomitant]
     Indication: DRUG USE FOR UNKNOWN INDICATION
     Route: 048
     Dates: start: 20050115, end: 20060918
  15. MASHI-NIN-GAN [Concomitant]
     Route: 048
     Dates: start: 20060919
  16. FRANDOL TAPE-S [Concomitant]
     Indication: ANGINA PECTORIS
     Dates: start: 20050115, end: 20060918
  17. FRANDOL TAPE-S [Concomitant]
     Dates: start: 20060919
  18. S M POWDER [Concomitant]
     Indication: PROPHYLAXIS
     Route: 048
     Dates: start: 20050115, end: 20060918
  19. S M POWDER [Concomitant]
     Route: 048
     Dates: start: 20060919

REACTIONS (2)
  - MULTI-ORGAN FAILURE [None]
  - PNEUMONIA ASPIRATION [None]
